FAERS Safety Report 4633891-X (Version None)
Quarter: 2005Q2

REPORT INFORMATION
  Report Type: 
  Country: None (occurrence: None)
  Receive Date: 20050412
  Receipt Date: 20050331
  Transmission Date: 20051028
  Serious: Yes (Hospitalization)
  Sender: FDA-Public Use
  Company Number: 2005052135

PATIENT
  Age: 54 Year
  Sex: Male
  Weight: 89.3586 kg

DRUGS (4)
  1. LISTERINE ANTISEPTIC MOUTHWASH (MENTHOL, METHYL SALICYLATE, EUCALYPTOL [Suspect]
     Indication: INTENTIONAL MISUSE
     Dosage: 1/2 LITER ONCE ORAL
     Route: 048
     Dates: start: 20050330, end: 20050330
  2. ETHANOL (ETHANOL) [Suspect]
     Dosage: ORAL
     Route: 048
  3. AZITHROMYCIN [Concomitant]
  4. LORAZEPAM [Concomitant]

REACTIONS (3)
  - ALCOHOL USE [None]
  - GASTROINTESTINAL HAEMORRHAGE [None]
  - INTENTIONAL MISUSE [None]
